FAERS Safety Report 14967661 (Version 1)
Quarter: 2018Q2

REPORT INFORMATION
  Report Type: Other
  Country: ES (occurrence: ES)
  Receive Date: 20180604
  Receipt Date: 20180604
  Transmission Date: 20180711
  Serious: Yes (Other)
  Sender: FDA-Public Use
  Company Number: ES-MACLEODS PHARMACEUTICALS US LTD-MAC2018014138

PATIENT

DRUGS (4)
  1. ARIPIPRAZOLE 15MG TABLET [Suspect]
     Active Substance: ARIPIPRAZOLE
     Indication: MAJOR DEPRESSION
     Dosage: 15 MILLIGRAM, QD, (INITILALY 10 MG THEN INCREASE: 15MG DAILY REDUCE TO 5 MG)
     Route: 048
  2. LORAZEPAM. [Concomitant]
     Active Substance: LORAZEPAM
     Indication: MAJOR DEPRESSION
     Dosage: 1.5 MILLIGRAM, (INTERMITTENT), 8 HOUR
     Route: 065
  3. MIRTAZAPINE. [Concomitant]
     Active Substance: MIRTAZAPINE
     Indication: MAJOR DEPRESSION
     Dosage: 30 MILLIGRAM, QD
     Route: 065
  4. VENLAFAXINE [Concomitant]
     Active Substance: VENLAFAXINE HYDROCHLORIDE
     Indication: MAJOR DEPRESSION
     Dosage: 225 MILLIGRAM
     Route: 065

REACTIONS (3)
  - Parkinsonism [Recovering/Resolving]
  - Product use in unapproved indication [Unknown]
  - Delusion [Recovering/Resolving]
